FAERS Safety Report 10386555 (Version 1)
Quarter: 2014Q1

REPORT INFORMATION
  Report Type: Spontaneous
  Country: US (occurrence: None)
  Receive Date: 20140306
  Receipt Date: 20140306
  Transmission Date: 20141002
  Serious: Yes (Hospitalization, Other)
  Sender: FDA-Public Use
  Company Number: 163-21880-12102843

PATIENT
  Age: 87 Year
  Sex: Female

DRUGS (3)
  1. REVLIMID [Suspect]
     Indication: MYELODYSPLASTIC SYNDROME
     Dosage: 10MG, FOR 28 DAYS, PO?TEMPORARILY INTERRUPTED
     Route: 048
     Dates: start: 20070831
  2. SOTALOL [Concomitant]
  3. PAIN MEDICATION (ANALGESICS) [Concomitant]

REACTIONS (4)
  - Spinal compression fracture [None]
  - Small intestinal obstruction [None]
  - Atrial fibrillation [None]
  - Haemoglobin decreased [None]
